FAERS Safety Report 18150338 (Version 1)
Quarter: 2020Q3

REPORT INFORMATION
  Report Type: Spontaneous
  Country: DE (occurrence: DE)
  Receive Date: 20200814
  Receipt Date: 20200814
  Transmission Date: 20201103
  Serious: Yes (Hospitalization)
  Sender: FDA-Public Use
  Company Number: DE-ACCORD-195448

PATIENT
  Age: 58 Year
  Sex: Female

DRUGS (4)
  1. OXALIPLATIN. [Suspect]
     Active Substance: OXALIPLATIN
     Indication: PRODUCT USED FOR UNKNOWN INDICATION
     Dosage: NK MG, LATEST 27122019
  2. ONDANSETRON [Concomitant]
     Active Substance: ONDANSETRON
     Dosage: 8 MG, IF NECESSARY, TABLETS
     Route: 048
  3. METAMIZOLE SODIUM [Concomitant]
     Active Substance: METAMIZOLE SODIUM
     Dosage: 500 MG, IF NECESSARY, DROPS
     Route: 048
  4. PANITUMUMAB [Suspect]
     Active Substance: PANITUMUMAB
     Indication: PRODUCT USED FOR UNKNOWN INDICATION
     Dosage: NK MG, LATEST 27122019

REACTIONS (4)
  - Haematuria [Recovering/Resolving]
  - Anaemia [Recovering/Resolving]
  - Localised infection [Recovering/Resolving]
  - General physical health deterioration [Recovering/Resolving]
